FAERS Safety Report 23954761 (Version 1)
Quarter: 2024Q2

REPORT INFORMATION
  Report Type: Spontaneous
  Country: RO (occurrence: RO)
  Receive Date: 20240610
  Receipt Date: 20240610
  Transmission Date: 20240716
  Serious: Yes (Other)
  Sender: FDA-Public Use
  Company Number: RO-ABBVIE-5774068

PATIENT
  Age: 53 Year
  Sex: Female

DRUGS (4)
  1. ADALIMUMAB [Suspect]
     Active Substance: ADALIMUMAB\ISOPROPYL ALCOHOL
     Indication: Axial spondyloarthritis
     Dosage: 40 MILLIGRAM, Q2WK
     Route: 058
     Dates: start: 202110, end: 202201
  2. BUDESONIDE [Concomitant]
     Active Substance: BUDESONIDE
     Indication: Product used for unknown indication
     Dosage: UNK
     Route: 065
     Dates: start: 202308
  3. SECUKINUMAB [Concomitant]
     Active Substance: SECUKINUMAB
     Indication: Product used for unknown indication
     Dosage: INCREASE DOSE
     Route: 065
     Dates: start: 202205, end: 202310
  4. SECUKINUMAB [Concomitant]
     Active Substance: SECUKINUMAB
     Dosage: 150 MILLIGRAM
     Route: 065
     Dates: start: 202202

REACTIONS (9)
  - Crohn^s disease [Unknown]
  - Diverticulitis [Unknown]
  - Inflammation [Unknown]
  - Diverticulum intestinal [Unknown]
  - Faecal calprotectin increased [Unknown]
  - Unevaluable event [Unknown]
  - Haemorrhage [Unknown]
  - Carbuncle [Unknown]
  - Injection site hypersensitivity [Unknown]

NARRATIVE: CASE EVENT DATE: 20210101
